FAERS Safety Report 5194293-3 (Version None)
Quarter: 2006Q4

REPORT INFORMATION
  Report Type: 
  Country: None (occurrence: None)
  Receive Date: 20061228
  Receipt Date: 20061013
  Transmission Date: 20070319
  Serious: Yes (Death)
  Sender: FDA-Public Use
  Company Number: US-PFIZER INC-2006128876

PATIENT
  Age: 51 Year
  Sex: Male

DRUGS (3)
  1. CELEBREX [Suspect]
     Dates: start: 20060101, end: 20060101
  2. SKELAXIN [Concomitant]
  3. ALL OTHER THERAPEUTIC PRODUCTS [Concomitant]

REACTIONS (2)
  - HOMICIDE [None]
  - INJURY ASPHYXIATION [None]
